FAERS Safety Report 11003598 (Version 1)
Quarter: 2015Q2

REPORT INFORMATION
  Report Type: Spontaneous
  Country: US (occurrence: US)
  Receive Date: 20150409
  Receipt Date: 20150409
  Transmission Date: 20150821
  Serious: Yes (Hospitalization)
  Sender: FDA-Public Use
  Company Number: US-BAYER-2015-116341

PATIENT
  Age: 92 Year
  Sex: Female
  Weight: 55 kg

DRUGS (5)
  1. ACETYLSALICYLIC ACID(}100 MG) [Suspect]
     Active Substance: ASPIRIN
     Indication: PRODUCT USED FOR UNKNOWN INDICATION
     Route: 048
  2. XANAX [Concomitant]
     Active Substance: ALPRAZOLAM
  3. BAYER GENUINE ASPIRIN [Suspect]
     Active Substance: ASPIRIN
     Indication: CEREBROVASCULAR ACCIDENT PROPHYLAXIS
     Dosage: 2 DF, UNK
     Route: 048
  4. LISINOPRIL. [Concomitant]
     Active Substance: LISINOPRIL
  5. BAYER LOW DOSE [Concomitant]
     Active Substance: ASPIRIN

REACTIONS (3)
  - Wrong technique in drug usage process [None]
  - Cerebrovascular accident [Recovered/Resolved]
  - Medication error [None]

NARRATIVE: CASE EVENT DATE: 20150331
